FAERS Safety Report 13869524 (Version 1)
Quarter: 2017Q3

REPORT INFORMATION
  Report Type: Spontaneous
  Country: US (occurrence: US)
  Receive Date: 20170815
  Receipt Date: 20170815
  Transmission Date: 20171127
  Serious: Yes (Hospitalization)
  Sender: FDA-Public Use
  Company Number: US-GLAXOSMITHKLINE-US2017124393

PATIENT
  Age: 77 Year
  Sex: Female

DRUGS (11)
  1. HYDROCHLOROTHIAZIDE. [Concomitant]
     Active Substance: HYDROCHLOROTHIAZIDE
  2. RALOXIFENE. [Concomitant]
     Active Substance: RALOXIFENE
  3. LOSARTAN. [Concomitant]
     Active Substance: LOSARTAN
  4. ATORVASTATIN [Concomitant]
     Active Substance: ATORVASTATIN
  5. ASPIRIN (BABY) [Concomitant]
     Active Substance: ASPIRIN
  6. FLUTICASONE. [Concomitant]
     Active Substance: FLUTICASONE
  7. COREG [Concomitant]
     Active Substance: CARVEDILOL
  8. ASTELIN [Concomitant]
     Active Substance: AZELASTINE HYDROCHLORIDE
  9. LEVOTHYROXINE. [Concomitant]
     Active Substance: LEVOTHYROXINE
     Dosage: 100 UG, UNK
  10. MELOXICAM. [Concomitant]
     Active Substance: MELOXICAM
  11. ADVAIR DISKUS [Suspect]
     Active Substance: FLUTICASONE PROPIONATE\SALMETEROL XINAFOATE
     Indication: ASTHMA
     Dosage: 1 PUFF(S), BID

REACTIONS (2)
  - Physiotherapy [Unknown]
  - Knee operation [Unknown]

NARRATIVE: CASE EVENT DATE: 201508
